FAERS Safety Report 18447988 (Version 1)
Quarter: 2020Q4

REPORT INFORMATION
  Report Type: Spontaneous
  Country: US (occurrence: US)
  Receive Date: 20201031
  Receipt Date: 20201031
  Transmission Date: 20210114
  Serious: No
  Sender: FDA-Public Use
  Company Number: US-EMMAUS MEDICAL, INC.-EMM202007-000228

PATIENT
  Age: 37 Year
  Sex: Female

DRUGS (3)
  1. ENDARI [Suspect]
     Active Substance: GLUTAMINE
     Indication: SICKLE CELL DISEASE
     Route: 048
     Dates: start: 20191010
  2. AMOXICILLIN. [Concomitant]
     Active Substance: AMOXICILLIN
     Indication: PRODUCT USED FOR UNKNOWN INDICATION
  3. CEPHALEXIN. [Concomitant]
     Active Substance: CEPHALEXIN
     Indication: PRODUCT USED FOR UNKNOWN INDICATION

REACTIONS (2)
  - Chest discomfort [Recovered/Resolved]
  - Abdominal pain upper [Recovered/Resolved]

NARRATIVE: CASE EVENT DATE: 20191010
